FAERS Safety Report 21594962 (Version 3)
Quarter: 2022Q4

REPORT INFORMATION
  Report Type: Spontaneous
  Country: US (occurrence: US)
  Receive Date: 20221115
  Receipt Date: 20221221
  Transmission Date: 20230112
  Serious: No
  Sender: FDA-Public Use
  Company Number: US-PFIZER INC-202201287414

PATIENT
  Age: 12 Year
  Sex: Male
  Weight: 37.19 kg

DRUGS (1)
  1. GENOTROPIN [Suspect]
     Active Substance: SOMATROPIN
     Indication: Growth disorder
     Dosage: 1.8 MG, 1X/DAY
     Route: 058

REACTIONS (2)
  - Device information output issue [Unknown]
  - Device use issue [Unknown]
